FAERS Safety Report 18822048 (Version 1)
Quarter: 2021Q1

REPORT INFORMATION
  Report Type: Spontaneous
  Country: CN (occurrence: CN)
  Receive Date: 20210202
  Receipt Date: 20210202
  Transmission Date: 20210419
  Serious: Yes (Life-Threatening, Disabling, Congenital Anomaly, Other)
  Sender: FDA-Public Use
  Company Number: CN-BRISTOL-MYERS SQUIBB COMPANY-BMS-2021-007044

PATIENT
  Age: 70 Year
  Sex: Male
  Weight: 70 kg

DRUGS (5)
  1. OPDIVO [Suspect]
     Active Substance: NIVOLUMAB
     Indication: GASTRIC CANCER
     Dosage: 300MG + 40MG (ONCE)
     Route: 041
     Dates: start: 20210110, end: 20210110
  2. CAPECITABINE. [Suspect]
     Active Substance: CAPECITABINE
     Indication: GASTRIC CANCER
     Dosage: 1.5 GRAM,DOSES RECEIVED: 2,NUMBERS OF DAY USING THE DRUG: 1
     Route: 048
     Dates: start: 20210110, end: 20210123
  3. OXALIPLATIN. [Suspect]
     Active Substance: OXALIPLATIN
     Indication: GASTRIC CANCER
     Dosage: 230 MILLIGRAM,DOSES RECEIVED: 1,NUMBERS OF DAY USING THE DRUG: 1
     Route: 041
     Dates: start: 20210110, end: 20210110
  4. SODIUM CHLORIDE. [Concomitant]
     Active Substance: SODIUM CHLORIDE
     Indication: PRODUCT USED FOR UNKNOWN INDICATION
     Dosage: 100 MILLILITER,DOSES RECEIVED: 1,NUMBERS OF DAY USING THE DRUG: 1
     Route: 041
     Dates: start: 20210110, end: 20210110
  5. GLUCOSE [Concomitant]
     Active Substance: DEXTROSE
     Indication: PRODUCT USED FOR UNKNOWN INDICATION
     Dosage: 500 MILLILITER,DOSES RECEIVED: 1,NUMBERS OF DAY USING THE DRUG: 1
     Route: 041
     Dates: start: 20210110, end: 20210110

REACTIONS (1)
  - Thrombocytopenia [Recovering/Resolving]

NARRATIVE: CASE EVENT DATE: 20210113
